FAERS Safety Report 15720702 (Version 2)
Quarter: 2019Q1

REPORT INFORMATION
  Report Type: Report from Study
  Country: US (occurrence: MX)
  Receive Date: 20181213
  Receipt Date: 20190104
  Transmission Date: 20190417
  Serious: Yes (Other)
  Sender: FDA-Public Use
  Company Number: US-SUNOVION-2016001286

PATIENT
  Age: 61 Year
  Sex: Female
  Weight: 71 kg

DRUGS (8)
  1. INDACATEROL AND GLYCOPYRROLATE [Suspect]
     Active Substance: GLYCOPYRROLATE\INDACATEROL MALEATE
     Dosage: 2 DF, PRN
     Route: 055
     Dates: end: 201810
  2. PANTOZOL [Concomitant]
     Active Substance: PANTOPRAZOLE SODIUM
     Indication: GASTRITIS
     Dosage: 1 DF, QD
     Route: 065
     Dates: start: 20181019
  3. PEMIX [Concomitant]
     Indication: GASTRITIS
     Dosage: 1 DF, QD STARTED 2 YEARS AGO1
     Route: 048
  4. ATROVENT [Concomitant]
     Active Substance: IPRATROPIUM BROMIDE
     Indication: PRODUCT USED FOR UNKNOWN INDICATION
     Dosage: UNKNOWN
     Route: 065
  5. VYTORIN [Concomitant]
     Active Substance: EZETIMIBE\SIMVASTATIN
     Indication: BLOOD CHOLESTEROL ABNORMAL
     Dosage: 1 DF, STARTED TWO YEARS APPROX./ MONDAY, WEDNESDAY
     Route: 065
  6. INDACATEROL AND GLYCOPYRROLATE [Suspect]
     Active Substance: GLYCOPYRROLATE\INDACATEROL MALEATE
     Indication: ASTHMA
     Dosage: 1 DF (INDACATEROL 110 UG/GLYCOPYRRONIUM BROMIDE 50 UG), QD
     Route: 055
     Dates: end: 201810
  7. STENOX [Concomitant]
     Indication: SLEEP DISORDER
     Dosage: 1 DF, QD STARTED A WHILE AGO
     Route: 065
  8. PANTOPRAZOL [Concomitant]
     Active Substance: PANTOPRAZOLE SODIUM
     Indication: GASTRITIS
     Dosage: 1 DF, QD
     Route: 048
     Dates: start: 20181019

REACTIONS (8)
  - Hyperventilation [Unknown]
  - Dry mouth [Recovered/Resolved]
  - Dyspnoea [Unknown]
  - Influenza [Recovered/Resolved]
  - Product use in unapproved indication [Unknown]
  - Asthmatic crisis [Unknown]
  - Mobility decreased [Unknown]
  - Inappropriate schedule of product administration [Unknown]

NARRATIVE: CASE EVENT DATE: 20181117
